FAERS Safety Report 18786239 (Version 1)
Quarter: 2021Q1

REPORT INFORMATION
  Report Type: Spontaneous
  Country: RU (occurrence: RU)
  Receive Date: 20210125
  Receipt Date: 20210125
  Transmission Date: 20210419
  Serious: Yes (Other)
  Sender: FDA-Public Use
  Company Number: RU-ASTRAZENECA-2021A011517

PATIENT
  Age: 19081 Day
  Sex: Female
  Weight: 62 kg

DRUGS (5)
  1. LYNPARZA [Suspect]
     Active Substance: OLAPARIB
     Indication: GENE MUTATION
     Route: 048
  2. BEVACIZUMAB. [Suspect]
     Active Substance: BEVACIZUMAB
     Indication: NEOPLASM PROPHYLAXIS
     Route: 041
     Dates: start: 202010, end: 202101
  3. LYNPARZA [Suspect]
     Active Substance: OLAPARIB
     Indication: BRCA1 GENE MUTATION
     Dosage: 50 MG, 16 A DAY
     Route: 048
     Dates: start: 20201230, end: 20210104
  4. LYNPARZA [Suspect]
     Active Substance: OLAPARIB
     Indication: BRCA1 GENE MUTATION
     Route: 048
  5. LYNPARZA [Suspect]
     Active Substance: OLAPARIB
     Indication: GENE MUTATION
     Dosage: 50 MG, 16 A DAY
     Route: 048
     Dates: start: 20201230, end: 20210104

REACTIONS (4)
  - Rales [Recovered/Resolved]
  - Pneumonia [Unknown]
  - Arthralgia [Not Recovered/Not Resolved]
  - Fatigue [Recovered/Resolved]

NARRATIVE: CASE EVENT DATE: 20210104
